FAERS Safety Report 24706359 (Version 1)
Quarter: 2024Q4

REPORT INFORMATION
  Report Type: Spontaneous
  Country: FR (occurrence: FR)
  Receive Date: 20241206
  Receipt Date: 20241206
  Transmission Date: 20250115
  Serious: No
  Sender: PFIZER
  Company Number: FR-PFIZER INC-PV202400157579

PATIENT
  Age: 3 Year
  Sex: Male

DRUGS (1)
  1. NGENLA [Suspect]
     Active Substance: SOMATROGON-GHLA
     Dosage: UNK
     Dates: start: 20240606, end: 202411

REACTIONS (1)
  - Injection site pain [Unknown]
